FAERS Safety Report 8103659-0 (Version None)
Quarter: 2012Q1

REPORT INFORMATION
  Report Type: 
  Country: None (occurrence: None)
  Receive Date: 20120201
  Receipt Date: 20120125
  Transmission Date: 20120608
  Serious: Yes (Hospitalization)
  Sender: FDA-Public Use
  Company Number: US-JNJFOC-20110905959

PATIENT
  Sex: Male
  Weight: 120.66 kg

DRUGS (7)
  1. CLONIDINE [Concomitant]
     Indication: HYPERTENSION
     Route: 065
  2. NAPROXEN [Concomitant]
     Indication: ANTIINFLAMMATORY THERAPY
     Dosage: TWICE A DAY FOR ONE WEEK
     Route: 065
     Dates: start: 20110404
  3. AMLODIPINE [Concomitant]
     Indication: HYPERTENSION
     Route: 065
  4. DIOVAN [Concomitant]
     Indication: HYPERTENSION
     Route: 065
  5. ASPIRIN [Concomitant]
     Route: 065
  6. NUCYNTA [Suspect]
     Indication: PAIN
     Dosage: ONCE IN 4 TO 6 HOURS AS NEEDED
     Route: 048
     Dates: start: 20110404, end: 20111004
  7. COREG [Concomitant]
     Indication: HYPERTENSION
     Route: 065

REACTIONS (7)
  - THERAPY CESSATION [None]
  - NAUSEA [None]
  - HYPERTENSION [None]
  - WITHDRAWAL SYNDROME [None]
  - VISUAL IMPAIRMENT [None]
  - MYOCARDIAL INFARCTION [None]
  - CHILLS [None]
